FAERS Safety Report 5356256-4 (Version None)
Quarter: 2007Q2

REPORT INFORMATION
  Report Type: 
  Country: None (occurrence: None)
  Receive Date: 20070612
  Receipt Date: 20070604
  Transmission Date: 20071010
  Serious: Yes (Hospitalization)
  Sender: FDA-Public Use
  Company Number: JP-PFIZER INC-2007046679

PATIENT
  Age: 60 Year
  Sex: Male

DRUGS (5)
  1. DEPO-MEDROL [Suspect]
  2. CYANOCOBALAMIN [Concomitant]
     Dates: start: 20070528, end: 20070528
  3. MEYLON [Concomitant]
     Dates: start: 20070528, end: 20070528
  4. ATARAX [Concomitant]
     Dates: start: 20070528, end: 20070528
  5. LIPLE [Concomitant]
     Dates: start: 20070528, end: 20070528

REACTIONS (1)
  - INCORRECT ROUTE OF DRUG ADMINISTRATION [None]
